FAERS Safety Report 8012706-6 (Version None)
Quarter: 2011Q4

REPORT INFORMATION
  Report Type: 
  Country: None (occurrence: None)
  Receive Date: 20111223
  Receipt Date: 20111209
  Transmission Date: 20120403
  Serious: Yes (Hospitalization)
  Sender: FDA-Public Use
  Company Number: CRC-11-332

PATIENT
  Age: 65 Year
  Sex: Female

DRUGS (3)
  1. LETROZOLE [Suspect]
     Indication: BREAST CANCER
     Dosage: 2.5 MG DAILY; ORAL
     Route: 048
  2. LETROZOLE [Suspect]
     Indication: METASTASES TO LIVER
     Dosage: 2.5 MG DAILY; ORAL
     Route: 048
  3. ALENDRONATE SODIUM [Concomitant]

REACTIONS (6)
  - VOMITING [None]
  - DECREASED APPETITE [None]
  - MYALGIA [None]
  - FATIGUE [None]
  - ARTHRALGIA [None]
  - DEHYDRATION [None]
